FAERS Safety Report 16846735 (Version 1)
Quarter: 2019Q3

REPORT INFORMATION
  Report Type: Spontaneous
  Country: US (occurrence: US)
  Receive Date: 20190924
  Receipt Date: 20190924
  Transmission Date: 20191005
  Serious: Yes (Hospitalization)
  Sender: FDA-Public Use
  Company Number: US-TEVA-2019-US-1112181

PATIENT
  Age: 75 Year
  Sex: Male

DRUGS (2)
  1. BETAMETHASONE CLOTRIMAZOLE [Concomitant]
     Active Substance: BETAMETHASONE DIPROPIONATE\CLOTRIMAZOLE
     Indication: BENIGN FAMILIAL PEMPHIGUS
     Route: 061
  2. PREDNISONE. [Suspect]
     Active Substance: PREDNISONE
     Indication: BENIGN FAMILIAL PEMPHIGUS
     Route: 065

REACTIONS (1)
  - Eczema herpeticum [Unknown]
